FAERS Safety Report 8965458 (Version 3)
Quarter: 2013Q1

REPORT INFORMATION
  Report Type: Report from Study
  Country: US (occurrence: US)
  Receive Date: 20121213
  Receipt Date: 20130213
  Transmission Date: 20140127
  Serious: Yes (Hospitalization, Other)
  Sender: FDA-Public Use
  Company Number: US-ASTELLAS-2012US010740

PATIENT
  Age: 81 Year
  Sex: Female

DRUGS (1)
  1. ERLOTINIB TABLET [Suspect]
     Indication: LUNG NEOPLASM MALIGNANT
     Dosage: 100 MG, UID/QD
     Route: 048
     Dates: start: 20121012

REACTIONS (6)
  - Incorrect dose administered [Unknown]
  - Hospitalisation [Unknown]
  - Adverse event [Unknown]
  - Pneumonia [Unknown]
  - Diarrhoea [Unknown]
  - Skin exfoliation [Unknown]
